FAERS Safety Report 10799054 (Version 1)
Quarter: 2015Q1

REPORT INFORMATION
  Report Type: Spontaneous
  Country: None (occurrence: US)
  Receive Date: 20150216
  Receipt Date: 20150216
  Transmission Date: 20150721
  Serious: No
  Sender: FDA-Public Use
  Company Number: US-ALLERGAN-1403512US

PATIENT
  Age: 66 Year
  Sex: Female

DRUGS (2)
  1. OTC LUBRICATING EYE DROPS [Concomitant]
     Indication: PRODUCT USED FOR UNKNOWN INDICATION
  2. RESTASIS [Suspect]
     Active Substance: CYCLOSPORINE
     Indication: DRY EYE
     Dosage: UNK
     Dates: start: 201310

REACTIONS (2)
  - Eye pain [Recovering/Resolving]
  - Vision blurred [Recovering/Resolving]
